FAERS Safety Report 17458439 (Version 1)
Quarter: 2020Q1

REPORT INFORMATION
  Report Type: Spontaneous
  Country: FR (occurrence: FR)
  Receive Date: 20200225
  Receipt Date: 20200225
  Transmission Date: 20200409
  Serious: Yes (Other)
  Sender: FDA-Public Use
  Company Number: FR-MYLANLABS-2020M1019968

PATIENT
  Age: 58 Year
  Sex: Female

DRUGS (2)
  1. DARUNAVIR [Suspect]
     Active Substance: DARUNAVIR
     Indication: HIV INFECTION
     Dosage: UNK
  2. QUETIAPINE. [Suspect]
     Active Substance: QUETIAPINE
     Indication: BIPOLAR DISORDER
     Dosage: 150 MILLIGRAM, QD

REACTIONS (4)
  - Psychomotor retardation [Unknown]
  - Overdose [Unknown]
  - Syncope [Unknown]
  - Electrocardiogram QT prolonged [Unknown]
